FAERS Safety Report 9665027 (Version 2)
Quarter: 2013Q4

REPORT INFORMATION
  Report Type: Report from Study
  Country: US (occurrence: US)
  Receive Date: 20131101
  Receipt Date: 20131209
  Transmission Date: 20140711
  Serious: No
  Sender: FDA-Public Use
  Company Number: US-VERTEX PHARMACEUTICALS INC-2013-010837

PATIENT
  Age: 13 Year
  Sex: Male

DRUGS (11)
  1. VX-770 [Suspect]
     Indication: CYSTIC FIBROSIS
     Dosage: 150 MG, BID
     Dates: start: 20120307, end: 201301
  2. AXID [Concomitant]
  3. VITAMINS [Concomitant]
  4. ZENPEP [Concomitant]
  5. VENTOLIN [Concomitant]
  6. FLOVENT [Concomitant]
  7. PULMOZYME [Concomitant]
  8. ASTELIN [Concomitant]
  9. PREVACID [Concomitant]
  10. FLONASE [Concomitant]
  11. ZYRTEC [Concomitant]

REACTIONS (2)
  - Ear infection [Unknown]
  - Upper respiratory tract infection [Unknown]
